FAERS Safety Report 25593850 (Version 2)
Quarter: 2025Q3

REPORT INFORMATION
  Report Type: Report from Study
  Country: CN (occurrence: CN)
  Receive Date: 20250723
  Receipt Date: 20250805
  Transmission Date: 20251021
  Serious: Yes (Hospitalization)
  Sender: BAXTER
  Company Number: CN-2025BAX018414-BAXTER

PATIENT
  Age: 56 Year
  Sex: Female
  Weight: 67.3 kg

DRUGS (9)
  1. CYCLOPHOSPHAMIDE [Suspect]
     Active Substance: CYCLOPHOSPHAMIDE
     Indication: Follicular lymphoma
     Dosage: 1309.2 MG, EVERY 3 WK, CYCLE 1-6 (21-DAY CYCLE) ON DAY 1
     Route: 042
     Dates: start: 20250702
  2. DOXORUBICIN [Suspect]
     Active Substance: DOXORUBICIN
     Indication: Follicular lymphoma
     Dosage: 87.28 MG, EVERY 3 WK, CYCLE1-6 (21 DAY CYCLE) ON DAY 1
     Route: 042
     Dates: start: 20250702
  3. RITUXIMAB [Suspect]
     Active Substance: RITUXIMAB
     Indication: Follicular lymphoma
     Dosage: 654.6 MG, EVERY 3 WK, CYCLE 1-8 (21 DAY CYCLE) ON DAY 1
     Route: 042
     Dates: start: 20250701
  4. VINCRISTINE [Suspect]
     Active Substance: VINCRISTINE
     Indication: Follicular lymphoma
     Dosage: 2 MG, EVERY 3 WK, CYCLE 1-6 (21 DAY CYCLE) ON DAY 1
     Route: 042
     Dates: start: 20250702
  5. PREDNISONE [Suspect]
     Active Substance: PREDNISONE
     Indication: Follicular lymphoma
     Dosage: 100 MG, QD (EVERY 1 DAYS), CYCLE1-6 (21 DAY CYCLE) ON D1-5
     Route: 048
     Dates: start: 20250702
  6. EPCORITAMAB [Suspect]
     Active Substance: EPCORITAMAB
     Indication: Follicular lymphoma
     Route: 065
  7. ENTECAVIR [Concomitant]
     Active Substance: ENTECAVIR
     Indication: Chronic hepatitis B
     Dosage: 0.5 MG, EVERY 1 DAYS
     Route: 065
     Dates: start: 20250522
  8. SULFAMETHOXAZOLE [Concomitant]
     Active Substance: SULFAMETHOXAZOLE
     Indication: Antifungal prophylaxis
     Route: 065
     Dates: start: 20250702
  9. METHOTREXATE [Concomitant]
     Active Substance: METHOTREXATE
     Indication: Antifungal prophylaxis
     Dosage: 0.08 G, EVERY 1 DAYS
     Route: 065

REACTIONS (1)
  - Hypokalaemia [Recovered/Resolved]

NARRATIVE: CASE EVENT DATE: 20250703
